FAERS Safety Report 17939850 (Version 1)
Quarter: 2020Q2

REPORT INFORMATION
  Report Type: Spontaneous
  Country: SE (occurrence: SE)
  Receive Date: 20200624
  Receipt Date: 20200624
  Transmission Date: 20200714
  Serious: Yes (Hospitalization, Other)
  Sender: FDA-Public Use
  Company Number: SE-PFIZER INC-2020240865

PATIENT
  Age: 85 Year
  Sex: Female

DRUGS (5)
  1. CANDESARTAN. [Suspect]
     Active Substance: CANDESARTAN
     Indication: CARDIAC FAILURE
     Dosage: 16 MG, 1X/DAY
  2. SPIRONOLAKTON PFIZER [Suspect]
     Active Substance: SPIRONOLACTONE
     Indication: CARDIAC FAILURE
     Dosage: 25 MG, 1X/DAY
     Dates: start: 20180910
  3. FURIX [FUROSEMIDE] [Suspect]
     Active Substance: FUROSEMIDE
     Indication: CARDIAC FAILURE
     Dosage: 80 MG
     Dates: start: 20190517
  4. XARELTO [Concomitant]
     Active Substance: RIVAROXABAN
     Dosage: 15 MG, 1X/DAY
  5. BISOPROLOL [Concomitant]
     Active Substance: BISOPROLOL
     Dosage: UNK

REACTIONS (1)
  - Hypokalaemia [Unknown]

NARRATIVE: CASE EVENT DATE: 2020
